FAERS Safety Report 10155023 (Version 1)
Quarter: 2014Q2

REPORT INFORMATION
  Report Type: Spontaneous
  Country: DK (occurrence: JP)
  Receive Date: 20140506
  Receipt Date: 20140506
  Transmission Date: 20141212
  Serious: Yes (Hospitalization)
  Sender: FDA-Public Use
  Company Number: JP-FRI-1000067064

PATIENT
  Age: 5 Decade
  Sex: Male

DRUGS (3)
  1. LEXAPRO [Suspect]
     Indication: DEPRESSION
     Dosage: 10 MG
     Route: 048
  2. DOGMATYL [Suspect]
     Route: 048
  3. MEILAX [Concomitant]
     Route: 048

REACTIONS (1)
  - Atrioventricular block complete [Recovered/Resolved with Sequelae]
